FAERS Safety Report 5197481-5 (Version None)
Quarter: 2006Q4

REPORT INFORMATION
  Report Type: 
  Country: None (occurrence: None)
  Receive Date: 20060927
  Receipt Date: 20060717
  Transmission Date: 20070319
  Serious: No
  Sender: FDA-Public Use
  Company Number: US-CVT-061539

PATIENT
  Age: 45 Year
  Sex: Female

DRUGS (1)
  1. RANEXA [Suspect]
     Dates: start: 20060101, end: 20060101

REACTIONS (3)
  - DRY MOUTH [None]
  - DRY SKIN [None]
  - LIP DRY [None]
